FAERS Safety Report 8247845-8 (Version None)
Quarter: 2012Q1

REPORT INFORMATION
  Report Type: 
  Country: None (occurrence: None)
  Receive Date: 20120330
  Receipt Date: 20120316
  Transmission Date: 20120608
  Serious: Yes (Hospitalization, Disabling, Other)
  Sender: FDA-Public Use
  Company Number: PHHY2012FR009635

PATIENT
  Sex: Male

DRUGS (9)
  1. PHYSIOTENS [Suspect]
     Dosage: 1 DF, IN THE MORNING AND 1DF IN THE EVENING
     Route: 048
     Dates: end: 20120101
  2. ALFUZOSIN HCL [Concomitant]
     Dosage: 1 DF, IN THE EVENING
  3. PLAVIX [Concomitant]
     Dosage: 1 DF, IN THE MORNING
  4. CANDESARTAN CILEXETIL AND HYDROCHLOROTHIAZIDE [Suspect]
     Indication: HYPERTENSION
     Dosage: 1 DF, IN THE MORNING
  5. CRESTOR [Concomitant]
     Dosage: 1 DF, IN THE EVENING
  6. OMACOR [Concomitant]
     Dosage: 1 DF, IN THE MORNING
  7. RASILEZ [Suspect]
     Indication: HYPERTENSION
     Dosage: 1 DF IN THE EVENING
     Dates: end: 20120112
  8. ADENURIC [Suspect]
     Dosage: 1 DF, AT MIDDAY
     Dates: end: 20120101
  9. PLATELET AGGREGATION INHIBITORS [Concomitant]

REACTIONS (11)
  - RETINAL HAEMORRHAGE [None]
  - CEREBROVASCULAR ACCIDENT [None]
  - CAROTID ARTERY OCCLUSION [None]
  - BLOOD PRESSURE DECREASED [None]
  - EJECTION FRACTION DECREASED [None]
  - RETINAL ARTERY OCCLUSION [None]
  - MACULAR OEDEMA [None]
  - HEART RATE DECREASED [None]
  - VENTRICULAR EXTRASYSTOLES [None]
  - VENTRICULAR FIBRILLATION [None]
  - BLINDNESS UNILATERAL [None]
